FAERS Safety Report 6364577-1 (Version None)
Quarter: 2009Q3

REPORT INFORMATION
  Report Type: 
  Country: None (occurrence: None)
  Receive Date: 20090919
  Receipt Date: 20090723
  Transmission Date: 20100115
  Serious: No
  Sender: FDA-Public Use
  Company Number: US-ABBOTT-09P-163-0587720-00

PATIENT
  Sex: Male
  Weight: 143.01 kg

DRUGS (2)
  1. HUMIRA [Suspect]
     Indication: PSORIASIS
     Dosage: LOADING DOSE; DAY 1
     Dates: start: 20090701
  2. RAPTIVA [Concomitant]
     Indication: DRUG USE FOR UNKNOWN INDICATION
     Dates: start: 20080701, end: 20090624

REACTIONS (2)
  - EXFOLIATIVE RASH [None]
  - RASH PAPULAR [None]
